FAERS Safety Report 6354765-2 (Version None)
Quarter: 2009Q3

REPORT INFORMATION
  Report Type: 
  Country: None (occurrence: None)
  Receive Date: 20090909
  Receipt Date: 20090831
  Transmission Date: 20100115
  Serious: Yes (Hospitalization)
  Sender: FDA-Public Use
  Company Number: GXKR2009IT09761

PATIENT
  Age: 28 Year
  Sex: Male

DRUGS (3)
  1. CARBAMAZEPINE [Suspect]
     Indication: PSYCHOTIC DISORDER
  2. HALOPERIDOL [Suspect]
     Indication: PSYCHOTIC DISORDER
  3. PHENOTHIAZINE (PHENOTHIAZINE) [Suspect]
     Indication: PSYCHOTIC DISORDER

REACTIONS (4)
  - DIARRHOEA HAEMORRHAGIC [None]
  - GASTROINTESTINAL OEDEMA [None]
  - INTESTINAL MASS [None]
  - INTUSSUSCEPTION [None]
